FAERS Safety Report 7867797-X (Version None)
Quarter: 2011Q4

REPORT INFORMATION
  Report Type: 
  Country: None (occurrence: None)
  Receive Date: 20111028
  Receipt Date: 20111025
  Transmission Date: 20120403
  Serious: No
  Sender: FDA-Public Use
  Company Number: US-TEVA-306146USA

PATIENT
  Sex: Female
  Weight: 51.302 kg

DRUGS (4)
  1. FLUOXETINE HCL [Concomitant]
     Indication: DEPRESSION
  2. NAMENDA [Concomitant]
     Indication: DEMENTIA
  3. AZILECT [Suspect]
     Indication: PARKINSON'S DISEASE
     Dosage: .5 MILLIGRAM;
     Route: 048
     Dates: start: 20111020
  4. DONEPEZIL HYDROCHLORIDE [Concomitant]
     Indication: DEMENTIA

REACTIONS (5)
  - MUSCLE SPASMS [None]
  - ABDOMINAL PAIN UPPER [None]
  - ARTHRALGIA [None]
  - ABDOMINAL DISCOMFORT [None]
  - DIARRHOEA [None]
